FAERS Safety Report 24045051 (Version 1)
Quarter: 2024Q3

REPORT INFORMATION
  Report Type: Spontaneous
  Country: CN (occurrence: CN)
  Receive Date: 20240703
  Receipt Date: 20240703
  Transmission Date: 20241016
  Serious: Yes (Life-Threatening)
  Sender: JIANGSU HENGRUI MEDICINE
  Company Number: CN-Jiangsu Hengrui Medicine Co., Ltd.-2158795

PATIENT
  Age: 54 Year
  Sex: Male

DRUGS (5)
  1. CISATRACURIUM BESYLATE [Suspect]
     Active Substance: CISATRACURIUM BESYLATE
     Indication: Induction of anaesthesia
     Dates: start: 20240618, end: 20240618
  2. PROPOFOL [Suspect]
     Active Substance: PROPOFOL
     Dates: start: 20240618, end: 20240618
  3. REMIMAZOLAM [Suspect]
     Active Substance: REMIMAZOLAM
     Dates: start: 20240618, end: 20240618
  4. SUFENTANIL CITRATE [Suspect]
     Active Substance: SUFENTANIL CITRATE
     Dates: start: 20240618, end: 20240618
  5. ETOMIDATE [Suspect]
     Active Substance: ETOMIDATE
     Dates: start: 20240618, end: 20240618

REACTIONS (1)
  - Airway peak pressure increased [Recovering/Resolving]

NARRATIVE: CASE EVENT DATE: 20240618
